FAERS Safety Report 22147777 (Version 1)
Quarter: 2023Q1

REPORT INFORMATION
  Report Type: Spontaneous
  Country: US (occurrence: None)
  Receive Date: 20230327
  Receipt Date: 20230327
  Transmission Date: 20230417
  Serious: Yes (Hospitalization)
  Sender: FDA-Public Use
  Company Number: None

PATIENT
  Sex: Male

DRUGS (3)
  1. ZYKADIA [Suspect]
     Active Substance: CERITINIB
     Indication: Adrenal gland cancer
     Dosage: OTHER FREQUENCY : DAILY WITH FOOD;?
     Route: 048
     Dates: start: 20191205
  2. ZYKADIA [Suspect]
     Active Substance: CERITINIB
     Dosage: OTHER FREQUENCY : DAILY WITH FOOD;?
     Route: 048
  3. NEUPOGEN [Concomitant]

REACTIONS (1)
  - Therapy interrupted [None]
